FAERS Safety Report 5304422-6 (Version None)
Quarter: 2007Q2

REPORT INFORMATION
  Report Type: 
  Country: None (occurrence: None)
  Receive Date: 20070423
  Receipt Date: 20070416
  Transmission Date: 20071010
  Serious: Yes (Other)
  Sender: FDA-Public Use
  Company Number: FR-AVENTIS-200711343FR

PATIENT
  Age: 70 Year
  Sex: Female

DRUGS (2)
  1. KETEK [Suspect]
     Route: 048
     Dates: start: 20070201
  2. KETEK [Suspect]
     Route: 048
     Dates: start: 20070301, end: 20070301

REACTIONS (3)
  - HEPATITIS [None]
  - HEPATOCELLULAR DAMAGE [None]
  - VOMITING [None]
